FAERS Safety Report 6391473-6 (Version None)
Quarter: 2009Q4

REPORT INFORMATION
  Report Type: 
  Country: None (occurrence: None)
  Receive Date: 20091007
  Receipt Date: 20091001
  Transmission Date: 20100525
  Serious: Yes (Other)
  Sender: FDA-Public Use
  Company Number: US-BRISTOL-MYERS SQUIBB COMPANY-14802706

PATIENT
  Age: 59 Year
  Sex: Female
  Weight: 98 kg

DRUGS (10)
  1. COUMADIN [Suspect]
     Indication: PROPHYLAXIS
     Dosage: DOSE USED TO BE 6MG(6/DAY/WEEK) AND 4 MG ON WEDNESDAYS.
  2. COUMADIN [Suspect]
     Indication: ATRIAL FIBRILLATION
     Dosage: DOSE USED TO BE 6MG(6/DAY/WEEK) AND 4 MG ON WEDNESDAYS.
  3. COUMADIN [Suspect]
     Indication: HEART VALVE REPLACEMENT
     Dosage: DOSE USED TO BE 6MG(6/DAY/WEEK) AND 4 MG ON WEDNESDAYS.
  4. LOVENOX [Suspect]
     Indication: PROPHYLAXIS
     Dosage: SOLN FOR INJ; 13SEP-23SEP09 (6D)
     Dates: start: 20090913, end: 20090923
  5. LOVENOX [Suspect]
     Indication: ATRIAL FIBRILLATION
     Dosage: SOLN FOR INJ; 13SEP-23SEP09 (6D)
     Dates: start: 20090913, end: 20090923
  6. LOVENOX [Suspect]
     Indication: HEART VALVE REPLACEMENT
     Dosage: SOLN FOR INJ; 13SEP-23SEP09 (6D)
     Dates: start: 20090913, end: 20090923
  7. DIOVAN [Concomitant]
  8. METOPROLOL [Concomitant]
     Dosage: 12.5 AM (1/2 TAB AM AND HS)
  9. SIMVASTATIN [Concomitant]
  10. VYTORIN [Concomitant]

REACTIONS (6)
  - ABDOMINAL PAIN [None]
  - DECREASED APPETITE [None]
  - DIARRHOEA [None]
  - INTERNATIONAL NORMALISED RATIO DECREASED [None]
  - RECTAL HAEMORRHAGE [None]
  - THROMBOSIS [None]
